FAERS Safety Report 7537929-1 (Version None)
Quarter: 2011Q2

REPORT INFORMATION
  Report Type: 
  Country: None (occurrence: None)
  Receive Date: 20110609
  Receipt Date: 20110531
  Transmission Date: 20111010
  Serious: Yes (Hospitalization)
  Sender: FDA-Public Use
  Company Number: US-BAXTER-2011BH018069

PATIENT
  Age: 52 Year
  Sex: Male

DRUGS (6)
  1. GAMMAGARD S/D [Suspect]
     Indication: IMMUNODEFICIENCY COMMON VARIABLE
     Dates: start: 20100108, end: 20100917
  2. GAMMAGARD LIQUID [Suspect]
     Indication: SJOGREN'S SYNDROME
     Dates: start: 20091015, end: 20100101
  3. GAMMAGARD LIQUID [Suspect]
     Indication: OFF LABEL USE
     Dates: start: 20091015, end: 20100101
  4. GAMMAGARD S/D [Suspect]
     Indication: SJOGREN'S SYNDROME
     Dates: start: 20100108, end: 20100917
  5. GAMMAGARD LIQUID [Suspect]
     Indication: IMMUNODEFICIENCY COMMON VARIABLE
     Dates: start: 20091015, end: 20100101
  6. GAMMAGARD S/D [Suspect]
     Indication: OFF LABEL USE
     Dates: start: 20100108, end: 20100917

REACTIONS (6)
  - OPISTHOTONUS [None]
  - BONE PAIN [None]
  - EYE MOVEMENT DISORDER [None]
  - FOOT DEFORMITY [None]
  - MUSCLE RIGIDITY [None]
  - APNOEA [None]
